FAERS Safety Report 4776682-1 (Version None)
Quarter: 2005Q3

REPORT INFORMATION
  Report Type: 
  Country: None (occurrence: None)
  Receive Date: 20050923
  Receipt Date: 20050912
  Transmission Date: 20060218
  Serious: Yes (Other)
  Sender: FDA-Public Use
  Company Number: US-JNJFOC-20050902706

PATIENT
  Sex: Female
  Weight: 94.35 kg

DRUGS (14)
  1. INFLIXIMAB [Suspect]
     Indication: RHEUMATOID ARTHRITIS
     Route: 042
  2. CALCIUM WITH VITAMIN D [Concomitant]
  3. CALCIUM WITH VITAMIN D [Concomitant]
  4. CALCIUM WITH VITAMIN D [Concomitant]
  5. ASPIRIN [Concomitant]
  6. FOLIC ACID [Concomitant]
  7. MIACALCIN [Concomitant]
  8. CELEBREX [Concomitant]
  9. PREDNISONE [Concomitant]
  10. TREXALL [Concomitant]
  11. TRIAMTERENE AND HYDROCHLOROTHIAZIDE [Concomitant]
     Dosage: 37.5/25 DAILY
  12. ZOCOR [Concomitant]
  13. INDERAL [Concomitant]
  14. PREVACID [Concomitant]

REACTIONS (1)
  - SQUAMOUS CELL CARCINOMA OF SKIN [None]
